FAERS Safety Report 9930990 (Version 1)
Quarter: 2014Q1

REPORT INFORMATION
  Report Type: Spontaneous
  Country: BR (occurrence: BR)
  Receive Date: 20140227
  Receipt Date: 20140227
  Transmission Date: 20141002
  Serious: Yes (Other)
  Sender: FDA-Public Use
  Company Number: PHHY2014BR023772

PATIENT
  Age: 66 Year
  Sex: Female

DRUGS (2)
  1. ESTRADOT [Suspect]
     Indication: HORMONE REPLACEMENT THERAPY
     Dosage: (50 UG) 1 DF (REPORTED TUE AND THU), UNK
     Route: 062
  2. ESTRADOT [Suspect]
     Dosage: (25 UG) 1 DF (REPORTED TUE AND THU), UNK
     Route: 062

REACTIONS (4)
  - Hepatic cyst [Not Recovered/Not Resolved]
  - Herpes virus infection [Not Recovered/Not Resolved]
  - Breast mass [Recovered/Resolved]
  - Drug administered at inappropriate site [Unknown]
